FAERS Safety Report 4316289-3 (Version None)
Quarter: 2004Q1

REPORT INFORMATION
  Report Type: 
  Country: None (occurrence: None)
  Receive Date: 20040310
  Receipt Date: 20031002
  Transmission Date: 20041129
  Serious: Yes (Other)
  Sender: FDA-Public Use
  Company Number: HQWYE057407OCT03

PATIENT
  Age: 41 Year
  Sex: Female

DRUGS (1)
  1. PROTONIX [Suspect]
     Dosage: 40 MG 1 X PER 1 DAY ORAL
     Dates: start: 20030925, end: 20030930

REACTIONS (2)
  - ERYTHEMA [None]
  - URTICARIA [None]
